FAERS Safety Report 8138695-1 (Version None)
Quarter: 2012Q1

REPORT INFORMATION
  Report Type: 
  Country: None (occurrence: None)
  Receive Date: 20120215
  Receipt Date: 20120210
  Transmission Date: 20120608
  Serious: Yes (Other)
  Sender: FDA-Public Use
  Company Number: CA-BAYER-2012-012663

PATIENT
  Age: 54 Year
  Sex: Female

DRUGS (9)
  1. VITAMIN D [Concomitant]
     Dosage: 2000 IUD, OD
  2. BETASERON [Suspect]
     Indication: MULTIPLE SCLEROSIS
     Dosage: 0.25 MG, QOD
     Route: 058
     Dates: start: 20041201, end: 20100420
  3. GABAPENTIN [Concomitant]
     Indication: NEURALGIA
     Dosage: 230 MG, TID
     Route: 048
  4. FUROSEMIDE [Concomitant]
     Indication: OEDEMA PERIPHERAL
     Dosage: 60 MG, QD
  5. BACLOFEN [Concomitant]
     Indication: MUSCLE SPASTICITY
     Dosage: 10 MG, QID
     Route: 048
  6. NITROFURANTOIN [Concomitant]
     Indication: URINARY TRACT INFECTION
     Dosage: 50 MG, HS
  7. DETROL [Concomitant]
     Indication: NEUROGENIC BLADDER
     Dosage: 4 MG, UNK
     Route: 048
  8. METOCLOPRAMIDE [Concomitant]
     Indication: HYPERTENSION
     Dosage: 12/5 MG UNK
  9. ASPIRIN [Concomitant]
     Dosage: 81 MG, QD

REACTIONS (2)
  - HEPATIC CIRRHOSIS [None]
  - JAUNDICE [None]
